FAERS Safety Report 17167310 (Version 2)
Quarter: 2020Q1

REPORT INFORMATION
  Report Type: Report from Study
  Country: CL (occurrence: CL)
  Receive Date: 20191217
  Receipt Date: 20200119
  Transmission Date: 20200409
  Serious: Yes (Other)
  Sender: FDA-Public Use
  Company Number: CL-BEH-2019110591

PATIENT
  Age: 6 Year
  Sex: Male
  Weight: 26.5 kg

DRUGS (2)
  1. HIZENTRA [Suspect]
     Active Substance: HUMAN IMMUNOGLOBULIN G
     Indication: HYPOGAMMAGLOBULINAEMIA
     Dosage: UNK UNK, QW
     Route: 058
     Dates: start: 201609
  2. HIZENTRA [Suspect]
     Active Substance: HUMAN IMMUNOGLOBULIN G
     Dosage: 4 GRAM, QW
     Route: 058
     Dates: start: 201912

REACTIONS (3)
  - Respiratory tract infection [Recovered/Resolved]
  - Blood immunoglobulin G decreased [Not Recovered/Not Resolved]
  - Conjunctivitis [Recovered/Resolved]

NARRATIVE: CASE EVENT DATE: 201908
